FAERS Safety Report 23599932 (Version 1)
Quarter: 2024Q1

REPORT INFORMATION
  Report Type: Spontaneous
  Country: US (occurrence: US)
  Receive Date: 20240306
  Receipt Date: 20240306
  Transmission Date: 20240409
  Serious: No
  Sender: FDA-Public Use
  Company Number: US-BIOVITRUM-2024-US-003505

PATIENT
  Age: 17 Month
  Sex: Female

DRUGS (1)
  1. SYNAGIS [Suspect]
     Active Substance: PALIVIZUMAB
     Indication: Bacterial infection
     Dosage: 100MG/1ML VIAL?EVERY 28 DAYS
     Route: 030

REACTIONS (3)
  - Malaise [Unknown]
  - Pyrexia [Unknown]
  - Intentional product misuse [Not Recovered/Not Resolved]

NARRATIVE: CASE EVENT DATE: 20240212
